FAERS Safety Report 5925324-8 (Version None)
Quarter: 2008Q4

REPORT INFORMATION
  Report Type: 
  Country: None (occurrence: None)
  Receive Date: 20081020
  Receipt Date: 20081020
  Transmission Date: 20090506
  Serious: Yes (Life-Threatening)
  Sender: FDA-Public Use
  Company Number: None

PATIENT
  Age: 98 Year
  Sex: Female
  Weight: 53.8 kg

DRUGS (2)
  1. ZOSYN [Suspect]
     Indication: PNEUMONIA ASPIRATION
     Dosage: 4.5GM Q8H IV BOLUS
     Route: 040
     Dates: start: 20081015, end: 20081016
  2. ZOSYN [Suspect]
     Indication: SEPSIS
     Dosage: 4.5GM Q8H IV BOLUS
     Route: 040
     Dates: start: 20081015, end: 20081016

REACTIONS (1)
  - THROMBOCYTOPENIA [None]
